FAERS Safety Report 8864731 (Version 1)
Quarter: 2012Q4

REPORT INFORMATION
  Report Type: 
  Country: US (occurrence: US)
  Receive Date: 20121024
  Receipt Date: 20121024
  Transmission Date: 20130627
  Serious: No
  Sender: FDA-Public Use
  Company Number: US-AMGEN-USASP2011069007

PATIENT
  Age: 50 Year
  Sex: Female
  Weight: 88.4 kg

DRUGS (7)
  1. ENBREL [Suspect]
     Indication: PSORIATIC ARTHROPATHY
     Dosage: 50 mg, qwk
     Route: 058
     Dates: end: 20111211
  2. PREMPRO [Concomitant]
     Dosage: UNK
     Route: 048
  3. METHOTREXATE [Concomitant]
     Dosage: 2.5 mg, UNK
     Route: 048
  4. VICODIN [Concomitant]
     Dosage: UNK
     Route: 048
  5. FOLIC ACID [Concomitant]
     Dosage: 1 mg, UNK
     Route: 048
  6. MOTRIN IB [Concomitant]
     Dosage: 200 mg, UNK
     Route: 048
  7. HUMIRA [Concomitant]
     Dosage: 40 mg, UNK
     Route: 058

REACTIONS (3)
  - Injection site reaction [Unknown]
  - Injection site erythema [Unknown]
  - Injection site induration [Unknown]
